FAERS Safety Report 8333541-5 (Version None)
Quarter: 2012Q2

REPORT INFORMATION
  Report Type: 
  Country: None (occurrence: None)
  Receive Date: 20120503
  Receipt Date: 20120425
  Transmission Date: 20120825
  Serious: Yes (Hospitalization)
  Sender: FDA-Public Use
  Company Number: IN-SANOFI-AVENTIS-2012SA030600

PATIENT
  Age: 22 Year
  Sex: Male

DRUGS (4)
  1. RIFAMPICIN [Suspect]
     Indication: PULMONARY TUBERCULOSIS
     Route: 065
  2. ISONIAZID [Concomitant]
     Indication: PULMONARY TUBERCULOSIS
  3. ETHAMBUTOL HYDROCHLORIDE [Concomitant]
     Indication: PULMONARY TUBERCULOSIS
  4. PYRAZINAMIDE [Concomitant]
     Indication: PULMONARY TUBERCULOSIS

REACTIONS (10)
  - HEART RATE INCREASED [None]
  - DEEP VEIN THROMBOSIS [None]
  - GROIN PAIN [None]
  - PULMONARY EMBOLISM [None]
  - HYPOTENSION [None]
  - CHEST PAIN [None]
  - RESPIRATORY RATE INCREASED [None]
  - SWELLING [None]
  - DYSPNOEA [None]
  - PULMONARY INFARCTION [None]
